FAERS Safety Report 12878101 (Version 2)
Quarter: 2016Q4

REPORT INFORMATION
  Report Type: Spontaneous
  Country: GB (occurrence: GB)
  Receive Date: 20161024
  Receipt Date: 20161026
  Transmission Date: 20170207
  Serious: Yes (Death)
  Sender: FDA-Public Use
  Company Number: GB-EISAI MEDICAL RESEARCH-EC-2016-021538

PATIENT
  Age: 65 Year
  Sex: Female

DRUGS (2)
  1. ERIBULIN [Suspect]
     Active Substance: ERIBULIN
     Indication: TRIPLE NEGATIVE BREAST CANCER
     Dosage: FULL DOSE (EXACT DOSE NOT SPECIFIED)
     Route: 041
     Dates: start: 201505, end: 2015
  2. ERIBULIN [Suspect]
     Active Substance: ERIBULIN
     Dosage: 20% DOSE REDUCTION
     Route: 041
     Dates: start: 2015, end: 201510

REACTIONS (2)
  - Neuropathy peripheral [Recovering/Resolving]
  - Malignant neoplasm progression [Fatal]

NARRATIVE: CASE EVENT DATE: 2015
